FAERS Safety Report 7208188-4 (Version None)
Quarter: 2011Q1

REPORT INFORMATION
  Report Type: 
  Country: None (occurrence: None)
  Receive Date: 20110104
  Receipt Date: 20101227
  Transmission Date: 20110831
  Serious: Yes (Hospitalization)
  Sender: FDA-Public Use
  Company Number: US-US-EMD SERONO, INC.-234644J09USA

PATIENT
  Sex: Female

DRUGS (5)
  1. RITALIN [Concomitant]
  2. MORPHINE SULFATE [Concomitant]
  3. CELEXA [Concomitant]
  4. REBIF [Suspect]
     Indication: MULTIPLE SCLEROSIS
     Route: 058
     Dates: start: 20080101
  5. BACLOFEN [Concomitant]

REACTIONS (1)
  - ARTHROPATHY [None]
